FAERS Safety Report 24765216 (Version 1)
Quarter: 2024Q4

REPORT INFORMATION
  Report Type: Spontaneous
  Country: IN (occurrence: IN)
  Receive Date: 20241223
  Receipt Date: 20241223
  Transmission Date: 20250114
  Serious: Yes (Death, Other)
  Sender: Unknown Manufacturer
  Company Number: IN-KOANAAP-SML-IN-2024-01241

PATIENT
  Age: 28 Year
  Sex: Female

DRUGS (4)
  1. IMATINIB [Suspect]
     Active Substance: IMATINIB
     Indication: Chronic myeloid leukaemia
  2. IMATINIB [Suspect]
     Active Substance: IMATINIB
  3. TRANEXAMIC ACID [Suspect]
     Active Substance: TRANEXAMIC ACID
     Indication: Disseminated intravascular coagulation
  4. HYDROXYUREA [Suspect]
     Active Substance: HYDROXYUREA
     Indication: Chronic myeloid leukaemia

REACTIONS (6)
  - Tumour lysis syndrome [Fatal]
  - Maternal exposure during pregnancy [Unknown]
  - Caesarean section [Unknown]
  - Retroplacental haematoma [Unknown]
  - Premature separation of placenta [Unknown]
  - Multiple organ dysfunction syndrome [Unknown]
